FAERS Safety Report 9068971 (Version 1)
Quarter: 2013Q1

REPORT INFORMATION
  Report Type: Spontaneous
  Country: US (occurrence: US)
  Receive Date: 20130128
  Receipt Date: 20130128
  Transmission Date: 20140127
  Serious: Yes (Other)
  Sender: FDA-Public Use
  Company Number: US-PFIZER INC-2013022623

PATIENT
  Age: 23 Year
  Sex: Female

DRUGS (2)
  1. ROBITUSSIN PEAK COLD NIGHTTIME MULTI-SYMPTOM COLD [Suspect]
     Indication: COUGH
     Dosage: UNK
     Dates: start: 20121223
  2. ROBITUSSIN PEAK COLD NIGHTTIME MULTI-SYMPTOM COLD [Suspect]
     Indication: NASOPHARYNGITIS

REACTIONS (5)
  - Expired drug administered [Unknown]
  - Syncope [Unknown]
  - Abdominal pain upper [Unknown]
  - Nausea [Unknown]
  - Diarrhoea [Unknown]
